FAERS Safety Report 17576746 (Version 2)
Quarter: 2020Q4

REPORT INFORMATION
  Report Type: Other
  Country: US (occurrence: US)
  Receive Date: 20200324
  Receipt Date: 20201221
  Transmission Date: 20210113
  Serious: No
  Sender: FDA-Public Use
  Company Number: US-ACORDA-ACO_164288_2020

PATIENT
  Sex: Female

DRUGS (2)
  1. INBRIJA [Suspect]
     Active Substance: LEVODOPA
     Indication: PARKINSON^S DISEASE
  2. INBRIJA [Suspect]
     Active Substance: LEVODOPA
     Indication: ON AND OFF PHENOMENON
     Dosage: 84 MILLIGRAM, PRN
     Dates: start: 20200924

REACTIONS (2)
  - Headache [Unknown]
  - Cough [Unknown]
